FAERS Safety Report 7008935-0 (Version None)
Quarter: 2010Q3

REPORT INFORMATION
  Report Type: 
  Country: None (occurrence: None)
  Receive Date: 20100923
  Receipt Date: 20100913
  Transmission Date: 20110219
  Serious: Yes (Hospitalization)
  Sender: FDA-Public Use
  Company Number: PHHY2010US43430

PATIENT
  Sex: Female
  Weight: 73.923 kg

DRUGS (2)
  1. RECLAST [Suspect]
     Indication: OSTEOPENIA
     Dosage: 5 MG, ONCE A YEAR
     Route: 042
     Dates: start: 20100623, end: 20100623
  2. VIVELLE [Concomitant]
     Dosage: 0.0375 MG TWICE A WEEK

REACTIONS (4)
  - CHEST PAIN [None]
  - DYSPNOEA [None]
  - MALAISE [None]
  - PAIN [None]
